FAERS Safety Report 17849706 (Version 2)
Quarter: 2020Q2

REPORT INFORMATION
  Report Type: Spontaneous
  Country: US (occurrence: US)
  Receive Date: 20200602
  Receipt Date: 20200604
  Transmission Date: 20200714
  Serious: Yes (Other)
  Sender: FDA-Public Use
  Company Number: US-PFIZER INC-2020213777

PATIENT
  Age: 36 Year
  Sex: Female
  Weight: 72 kg

DRUGS (3)
  1. PRISTIQ EXTENDED-RELEASE [Suspect]
     Active Substance: DESVENLAFAXINE SUCCINATE
     Indication: DEPRESSION
  2. PRISTIQ EXTENDED-RELEASE [Suspect]
     Active Substance: DESVENLAFAXINE SUCCINATE
     Indication: ANXIETY
     Dosage: 100 MG, 1X/DAY (100MG PILL ONCE A DAY)
     Dates: end: 2020
  3. PRISTIQ EXTENDED-RELEASE [Suspect]
     Active Substance: DESVENLAFAXINE SUCCINATE
     Indication: POST-TRAUMATIC STRESS DISORDER

REACTIONS (12)
  - Drug dependence [Unknown]
  - Anger [Unknown]
  - Weight increased [Unknown]
  - Anxiety [Unknown]
  - Impatience [Unknown]
  - Agitation [Unknown]
  - Irritability [Unknown]
  - Feeling jittery [Not Recovered/Not Resolved]
  - Heart rate increased [Unknown]
  - Mental disorder [Unknown]
  - Crying [Unknown]
  - Feeling abnormal [Unknown]

NARRATIVE: CASE EVENT DATE: 2020
